FAERS Safety Report 21638754 (Version 3)
Quarter: 2022Q4

REPORT INFORMATION
  Report Type: Report from Study
  Country: IT (occurrence: IT)
  Receive Date: 20221124
  Receipt Date: 20221220
  Transmission Date: 20230113
  Serious: Yes (Hospitalization)
  Sender: FDA-Public Use
  Company Number: IT-PFIZER INC-PV202200107990

PATIENT
  Age: 35 Year
  Sex: Female

DRUGS (2)
  1. CYTOTEC [Suspect]
     Active Substance: MISOPROSTOL
     Indication: Abortion induced
     Dosage: 200 MCG 6X/DAY
     Route: 048
     Dates: start: 20180515, end: 20180515
  2. IMMUNORHO [Concomitant]
     Indication: Prophylaxis
     Dosage: 300 UG
     Route: 030
     Dates: start: 20180515, end: 20180515

REACTIONS (1)
  - Haemorrhage [Recovered/Resolved]

NARRATIVE: CASE EVENT DATE: 20180522
